FAERS Safety Report 6140735-6 (Version None)
Quarter: 2009Q2

REPORT INFORMATION
  Report Type: 
  Country: None (occurrence: None)
  Receive Date: 20090402
  Receipt Date: 20090323
  Transmission Date: 20091009
  Serious: Yes (Hospitalization)
  Sender: FDA-Public Use
  Company Number: FR-WYE-H08763709

PATIENT
  Age: 86 Year
  Sex: Female

DRUGS (4)
  1. CORDARONE [Suspect]
     Indication: ARRHYTHMIA
     Route: 048
  2. HEMIGOXINE NATIVELLE [Interacting]
     Indication: ARRHYTHMIA
     Route: 048
  3. PREVISCAN [Concomitant]
     Route: 048
  4. FLUDEX [Interacting]
     Indication: ARRHYTHMIA
     Route: 048

REACTIONS (3)
  - DRUG INTERACTION [None]
  - FALL [None]
  - PELVIC FRACTURE [None]
